FAERS Safety Report 20216702 (Version 1)
Quarter: 2021Q4

REPORT INFORMATION
  Report Type: Spontaneous
  Country: DE (occurrence: DE)
  Receive Date: 20211222
  Receipt Date: 20211222
  Transmission Date: 20220303
  Serious: Yes (Other)
  Sender: FDA-Public Use
  Company Number: DE-009507513-2112DEU006630

PATIENT
  Age: 78 Year
  Sex: Male

DRUGS (6)
  1. PEMBROLIZUMAB [Suspect]
     Active Substance: PEMBROLIZUMAB
     Indication: Lung adenocarcinoma
     Dosage: UNK UNK, CYCLICAL
  2. PEMBROLIZUMAB [Suspect]
     Active Substance: PEMBROLIZUMAB
     Indication: Non-small cell lung cancer
  3. DABRAFENIB [Suspect]
     Active Substance: DABRAFENIB
     Indication: Lung adenocarcinoma
     Dosage: UNK
  4. DABRAFENIB [Suspect]
     Active Substance: DABRAFENIB
     Indication: Non-small cell lung cancer
  5. TRAMETINIB [Suspect]
     Active Substance: TRAMETINIB
     Indication: Non-small cell lung cancer
     Dosage: UNK
  6. TRAMETINIB [Suspect]
     Active Substance: TRAMETINIB
     Indication: Lung adenocarcinoma

REACTIONS (7)
  - Pulmonary fibrosis [Unknown]
  - Bronchopulmonary dysplasia [Unknown]
  - Alveolar lung disease [Unknown]
  - Pleural effusion [Recovering/Resolving]
  - Extravasation blood [Unknown]
  - Pleurisy [Unknown]
  - Pneumonitis [Unknown]

NARRATIVE: CASE EVENT DATE: 20200501
